FAERS Safety Report 9714515 (Version 4)
Quarter: 2014Q1

REPORT INFORMATION
  Report Type: Spontaneous
  Country: US (occurrence: US)
  Receive Date: 20131126
  Receipt Date: 20140109
  Transmission Date: 20141002
  Serious: Yes (Other)
  Sender: FDA-Public Use
  Company Number: US-PFIZER INC-2013332579

PATIENT
  Age: 62 Year
  Sex: Male

DRUGS (11)
  1. XELJANZ [Suspect]
     Indication: RHEUMATOID ARTHRITIS
     Dosage: 5 MG, 2X/DAY
     Route: 048
     Dates: start: 20131001, end: 20131117
  2. XELJANZ [Suspect]
     Dosage: 20 MG, 2X/DAY
  3. PROTONIX [Concomitant]
     Dosage: UNK
  4. METHOTREXATE SODIUM [Concomitant]
     Indication: RHEUMATOID ARTHRITIS
     Dosage: 17.5 MG, WEEKLY
     Dates: start: 2008
  5. LISINOPRIL [Concomitant]
     Dosage: UNK
  6. ADVAIR DISKUS [Concomitant]
     Dosage: FLUTICASONE PROPIONATE 250-SALMETEROL XINAFOATE50
  7. METOPROLOL SUCCINATE [Concomitant]
     Dosage: UNK
  8. CALCIUM [Concomitant]
     Dosage: UNK
  9. PLAVIX [Concomitant]
     Dosage: UNK
  10. ZETIA [Concomitant]
     Dosage: UNK
  11. FOLATE [Suspect]

REACTIONS (9)
  - Cardiac disorder [Recovering/Resolving]
  - Oropharyngeal pain [Recovered/Resolved]
  - Rhinorrhoea [Recovered/Resolved]
  - Asthenia [Recovering/Resolving]
  - Fatigue [Recovering/Resolving]
  - Dyspnoea [Recovering/Resolving]
  - Cough [Recovering/Resolving]
  - Nausea [Unknown]
  - Bronchitis [Unknown]
